FAERS Safety Report 9761641 (Version 1)
Quarter: 2013Q4

REPORT INFORMATION
  Report Type: Spontaneous
  Country: HU (occurrence: None)
  Receive Date: 20131212
  Receipt Date: 20131212
  Transmission Date: 20140711
  Serious: Yes (Other)
  Sender: FDA-Public Use
  Company Number: IPC201312-000498

PATIENT
  Age: 63 Year
  Sex: Male

DRUGS (7)
  1. HYDROCHLOROTHIAZIDE [Suspect]
  2. RAMIPRIL (RAMIPRIL) (RAMIPRIL) [Suspect]
  3. ROFLUMILAST [Suspect]
     Dosage: 500 MICROGRAM/DAY
  4. CEFIXIME [Suspect]
  5. TIOTROPIUM [Suspect]
  6. FENOTEROL/IPRATROPIUM BROMIDE [Suspect]
  7. PHENAZONE [Suspect]

REACTIONS (8)
  - Depression [None]
  - Cholecystitis [None]
  - Melaena [None]
  - Diverticulum [None]
  - Constipation [None]
  - Impaired gastric emptying [None]
  - Proctitis [None]
  - Nightmare [None]
